FAERS Safety Report 19748456 (Version 1)
Quarter: 2021Q3

REPORT INFORMATION
  Report Type: Spontaneous
  Country: US (occurrence: US)
  Receive Date: 20210825
  Receipt Date: 20210825
  Transmission Date: 20211014
  Serious: Yes (Other)
  Sender: FDA-Public Use
  Company Number: None

PATIENT
  Age: 39 Year
  Sex: Female
  Weight: 60.3 kg

DRUGS (2)
  1. STELLERA [Concomitant]
     Dates: start: 20210301
  2. REGEN?COV [Suspect]
     Active Substance: CASIRIVIMAB\IMDEVIMAB
     Indication: COVID-19
     Dosage: ?          OTHER FREQUENCY:ONCE;?
     Route: 041
     Dates: start: 20210820, end: 20210820

REACTIONS (4)
  - Swelling face [None]
  - Lip swelling [None]
  - Type IV hypersensitivity reaction [None]
  - Swelling of eyelid [None]

NARRATIVE: CASE EVENT DATE: 20210825
